FAERS Safety Report 11832444 (Version 1)
Quarter: 2015Q4

REPORT INFORMATION
  Report Type: Spontaneous
  Country: US (occurrence: US)
  Receive Date: 20151214
  Receipt Date: 20151214
  Transmission Date: 20160305
  Serious: No
  Sender: FDA-Public Use
  Company Number: US-PFIZER INC-2015419268

PATIENT
  Age: 29 Year
  Sex: Female
  Weight: 70.76 kg

DRUGS (4)
  1. NEURONTIN [Suspect]
     Active Substance: GABAPENTIN
     Dosage: 300 MG CAPSULES, 3 CAPSULES 3 TIMES A DAY
     Route: 048
     Dates: start: 20151129
  2. NEURONTIN [Suspect]
     Active Substance: GABAPENTIN
     Indication: SEIZURE
     Dosage: 300 MG CAPSULES, 3 CAPSULES 3 TIMES A DAY
     Route: 048
  3. NEURONTIN [Suspect]
     Active Substance: GABAPENTIN
     Dosage: 300 MG CAPSULES, 3 CAPSULES 3 TIMES A DAY
     Route: 048
     Dates: start: 201511
  4. NEURONTIN [Suspect]
     Active Substance: GABAPENTIN
     Dosage: 300 MG CAPSULES, 3 CAPSULES 3 TIMES A DAY
     Route: 048

REACTIONS (2)
  - Urticaria [Recovering/Resolving]
  - Product quality issue [Unknown]

NARRATIVE: CASE EVENT DATE: 201511
